FAERS Safety Report 17158727 (Version 11)
Quarter: 2020Q2

REPORT INFORMATION
  Report Type: Report from Study
  Country: KR (occurrence: KR)
  Receive Date: 20191216
  Receipt Date: 20200415
  Transmission Date: 20200713
  Serious: Yes (Hospitalization)
  Sender: FDA-Public Use
  Company Number: KR-EISAI MEDICAL RESEARCH-EC-2019-067092

PATIENT
  Age: 78 Year
  Sex: Female
  Weight: 59.2 kg

DRUGS (28)
  1. PEMBROLIZUMAB. [Suspect]
     Active Substance: PEMBROLIZUMAB
     Indication: MALIGNANT MELANOMA STAGE IV
     Route: 041
     Dates: start: 20191206, end: 20191206
  2. GASTER [Concomitant]
     Active Substance: FAMOTIDINE
     Dates: start: 20190821
  3. LAMINA G [Concomitant]
     Active Substance: SODIUM ALGINATE
     Dates: start: 20190821, end: 20191205
  4. QUINOVID [Concomitant]
     Dates: start: 20190829
  5. ENAFON [Concomitant]
     Dates: start: 20191115
  6. MOTILITONE [Concomitant]
     Active Substance: HERBALS
     Dates: start: 20191206, end: 20191206
  7. RAPISON [Concomitant]
     Dates: start: 20191206, end: 20191206
  8. LENVATINIB [Suspect]
     Active Substance: LENVATINIB
     Indication: MALIGNANT MELANOMA STAGE III
     Route: 048
     Dates: start: 20190529, end: 20191205
  9. DONEPEZIL HYDROCHLORIDE. [Concomitant]
     Active Substance: DONEPEZIL HYDROCHLORIDE
     Dates: start: 201501
  10. OCUVITE PRESERVISION [Concomitant]
     Dates: start: 201501, end: 20191231
  11. ALFOCHOLINE [Concomitant]
     Dates: start: 20190827
  12. TORAVINDEX [Concomitant]
     Dates: start: 20191105
  13. CARESKIN [Concomitant]
     Dates: start: 20191111
  14. ENTELON [Concomitant]
     Dates: start: 201501
  15. BEAROBAN [Concomitant]
     Dates: start: 20190730, end: 20200108
  16. AUGMENTIN [Concomitant]
     Active Substance: AMOXICILLIN\CLAVULANATE POTASSIUM
     Dates: start: 20191016, end: 20191231
  17. LIPIDIL SUPRA [Concomitant]
     Active Substance: FENOFIBRATE
     Dates: start: 20191026, end: 20191216
  18. DERBISOL [Concomitant]
  19. KABALIN [Concomitant]
     Dates: start: 20191028
  20. SUGANON [Concomitant]
     Active Substance: EVOGLIPTIN TARTRATE
     Dates: start: 20191109
  21. PAXIL CR [Concomitant]
     Active Substance: PAROXETINE HYDROCHLORIDE
     Dates: start: 20190911, end: 20200210
  22. LENVATINIB [Suspect]
     Active Substance: LENVATINIB
     Indication: MALIGNANT MELANOMA STAGE IV
  23. SYNTHROID [Concomitant]
     Active Substance: LEVOTHYROXINE SODIUM
     Dates: start: 20191019
  24. PEMBROLIZUMAB. [Suspect]
     Active Substance: PEMBROLIZUMAB
     Indication: MALIGNANT MELANOMA STAGE III
     Route: 041
     Dates: start: 20190529, end: 20191118
  25. TACOPEN [Concomitant]
     Dates: start: 20190805
  26. TELMINUVO [Concomitant]
     Active Substance: LEVAMLODIPINE\TELMISARTAN
     Dates: start: 20190827
  27. FULLEYELONE T [Concomitant]
     Dates: start: 20190829
  28. OPALMON [Concomitant]
     Active Substance: LIMAPROST
     Dates: start: 20191028

REACTIONS (1)
  - Immune-mediated hepatitis [Recovered/Resolved]

NARRATIVE: CASE EVENT DATE: 20191206
